APPROVED DRUG PRODUCT: AYUNA
Active Ingredient: ETHINYL ESTRADIOL; LEVONORGESTREL
Strength: 0.03MG;0.15MG
Dosage Form/Route: TABLET;ORAL-28
Application: A206866 | Product #001 | TE Code: AB
Applicant: AUROBINDO PHARMA LTD
Approved: Sep 23, 2016 | RLD: No | RS: No | Type: RX